FAERS Safety Report 24023994 (Version 2)
Quarter: 2024Q3

REPORT INFORMATION
  Report Type: Report from Study
  Country: CN (occurrence: CN)
  Receive Date: 20240627
  Receipt Date: 20240710
  Transmission Date: 20241017
  Serious: No
  Sender: ROCHE
  Company Number: CN-ROCHE-3193045

PATIENT
  Age: 67 Year
  Sex: Female
  Weight: 52.5 kg

DRUGS (1)
  1. ALECENSA [Suspect]
     Active Substance: ALECTINIB HYDROCHLORIDE
     Indication: Non-small cell lung cancer metastatic
     Dosage: 150MG*224CAPSULES(56CAPSULE*4BOX)
     Route: 048
     Dates: start: 20220415

REACTIONS (8)
  - Constipation [Recovered/Resolved]
  - Sunburn [Recovered/Resolved]
  - Hepatic function abnormal [Not Recovered/Not Resolved]
  - Tanning [Recovering/Resolving]
  - Sunburn [Not Recovered/Not Resolved]
  - Cerebral disorder [Recovering/Resolving]
  - Weight increased [Recovering/Resolving]
  - Hepatic function abnormal [Not Recovered/Not Resolved]

NARRATIVE: CASE EVENT DATE: 20220415
